FAERS Safety Report 4362469-0 (Version None)
Quarter: 2004Q2

REPORT INFORMATION
  Report Type: 
  Country: None (occurrence: None)
  Receive Date: 20040521
  Receipt Date: 20040516
  Transmission Date: 20050107
  Serious: Yes (Hospitalization)
  Sender: FDA-Public Use
  Company Number: M21170

PATIENT
  Age: 50 Year
  Sex: Female

DRUGS (2)
  1. AUGMENTIN [Suspect]
     Route: 065
  2. DELTACORTRIL [Suspect]
     Indication: POLYMYALGIA RHEUMATICA
     Route: 048

REACTIONS (7)
  - ANAPHYLACTIC REACTION [None]
  - CYSTITIS [None]
  - FLUID RETENTION [None]
  - LARYNGOSPASM [None]
  - MUSCLE SPASMS [None]
  - PRURITUS [None]
  - RASH MACULAR [None]
